FAERS Safety Report 8274271-8 (Version None)
Quarter: 2012Q2

REPORT INFORMATION
  Report Type: 
  Country: None (occurrence: None)
  Receive Date: 20120411
  Receipt Date: 20120411
  Transmission Date: 20120825
  Serious: No
  Sender: FDA-Public Use
  Company Number: None

PATIENT
  Age: 36 Year
  Sex: Female
  Weight: 73.028 kg

DRUGS (2)
  1. GILENYA [Suspect]
     Indication: MULTIPLE SCLEROSIS
     Dosage: 0.5 MG
     Route: 048
     Dates: start: 20111010, end: 20120224
  2. GILENYA [Concomitant]

REACTIONS (3)
  - HERPES VIRUS INFECTION [None]
  - APHTHOUS STOMATITIS [None]
  - TONGUE DISORDER [None]
